FAERS Safety Report 18135518 (Version 1)
Quarter: 2020Q3

REPORT INFORMATION
  Report Type: Spontaneous
  Country: US (occurrence: US)
  Receive Date: 20200811
  Receipt Date: 20200811
  Transmission Date: 20201103
  Serious: Yes (Other)
  Sender: FDA-Public Use
  Company Number: None

PATIENT
  Age: 82 Year
  Sex: Male
  Weight: 72 kg

DRUGS (9)
  1. TAMSULOSIN [Concomitant]
     Active Substance: TAMSULOSIN
  2. OMEPRAZOLE. [Concomitant]
     Active Substance: OMEPRAZOLE
  3. ASA [Concomitant]
     Active Substance: ASPIRIN
  4. LORAZEPAM. [Concomitant]
     Active Substance: LORAZEPAM
  5. BLUMEN ADVANCED HAND SANITIZER CLEAR [Suspect]
     Active Substance: ALCOHOL
     Indication: COVID-19 PROPHYLAXIS
     Dosage: ?          QUANTITY:1 DROP(S);?
     Route: 061
  6. LOSARTAN. [Concomitant]
     Active Substance: LOSARTAN
  7. SIMVASTATIN. [Concomitant]
     Active Substance: SIMVASTATIN
  8. FAMOTIDINE. [Concomitant]
     Active Substance: FAMOTIDINE
  9. MAGNESIUM [Concomitant]
     Active Substance: MAGNESIUM

REACTIONS (2)
  - Migraine [None]
  - Recalled product administered [None]

NARRATIVE: CASE EVENT DATE: 20200615
